FAERS Safety Report 5187202-4 (Version None)
Quarter: 2006Q4

REPORT INFORMATION
  Report Type: 
  Country: None (occurrence: None)
  Receive Date: 20061213
  Receipt Date: 20061206
  Transmission Date: 20070319
  Serious: Yes (Other)
  Sender: FDA-Public Use
  Company Number: SP01049

PATIENT
  Age: 75 Year
  Sex: Female
  Weight: 97.5234 kg

DRUGS (4)
  1. OSMOPREP [Suspect]
     Indication: COLONOSCOPY
     Dosage: 4 TABLET DOSE X  2, ORAL
     Route: 048
     Dates: start: 20061203, end: 20061203
  2. CALCIUM CITRATE [Concomitant]
  3. GLUCOSAMINE [Concomitant]
  4. TIMOLOL MALEATE [Concomitant]

REACTIONS (1)
  - ANAPHYLACTIC REACTION [None]
